FAERS Safety Report 19593682 (Version 3)
Quarter: 2021Q4

REPORT INFORMATION
  Report Type: Spontaneous
  Country: US (occurrence: US)
  Receive Date: 20210722
  Receipt Date: 20211207
  Transmission Date: 20220303
  Serious: No
  Sender: FDA-Public Use
  Company Number: US-BRISTOL-MYERS SQUIBB COMPANY-BMS-2021-071259

PATIENT
  Age: 45 Year
  Sex: Female
  Weight: 79.378 kg

DRUGS (1)
  1. ORENCIA [Suspect]
     Active Substance: ABATACEPT
     Indication: Rheumatoid arthritis
     Dosage: 125 MG, ONCE WEEKLY
     Route: 058
     Dates: start: 20210504

REACTIONS (5)
  - Haematoma [Unknown]
  - Injection site injury [Unknown]
  - Contusion [Unknown]
  - Skin swelling [Unknown]
  - Injection site haemorrhage [Recovered/Resolved]
